FAERS Safety Report 17727312 (Version 2)
Quarter: 2020Q2

REPORT INFORMATION
  Report Type: Spontaneous
  Country: IE (occurrence: IE)
  Receive Date: 20200430
  Receipt Date: 20200520
  Transmission Date: 20200714
  Serious: Yes (Other)
  Sender: FDA-Public Use
  Company Number: IE-ROCHE-2590258

PATIENT
  Age: 63 Year
  Sex: Male
  Weight: 102.3 kg

DRUGS (10)
  1. ESBRIET [Suspect]
     Active Substance: PIRFENIDONE
     Route: 065
  2. OLODATEROL HYDROCHLORIDE;TIOTROPIUM BROMIDE [Concomitant]
     Active Substance: OLODATEROL HYDROCHLORIDE\TIOTROPIUM BROMIDE MONOHYDRATE
  3. SALBUTAMOL [Concomitant]
     Active Substance: ALBUTEROL
  4. PROTECTIVES AGAINST UV-RADIATION FOR TOPICAL USE [Concomitant]
  5. DAPSONE. [Concomitant]
     Active Substance: DAPSONE
     Route: 065
  6. ESBRIET [Suspect]
     Active Substance: PIRFENIDONE
     Indication: IDIOPATHIC PULMONARY FIBROSIS
     Route: 048
     Dates: start: 20190808, end: 20200423
  7. PANTOPRAZOLE [Concomitant]
     Active Substance: PANTOPRAZOLE
     Route: 065
  8. BECLOMETHASONE [BECLOMETASONE] [Concomitant]
     Active Substance: BECLOMETHASONE
  9. LEVOCETIRIZINI DIHYDROCHLORIDUM [Concomitant]
     Route: 065
  10. AVAMYS [Concomitant]
     Active Substance: FLUTICASONE FUROATE
     Dosage: .5 MCG
     Route: 045

REACTIONS (5)
  - Rash erythematous [Not Recovered/Not Resolved]
  - Skin exfoliation [Unknown]
  - Erythema [Recovering/Resolving]
  - Formication [Unknown]
  - Pruritus [Unknown]
